FAERS Safety Report 9053431 (Version 2)
Quarter: 2013Q1

REPORT INFORMATION
  Report Type: Report from Study
  Country: AU (occurrence: AU)
  Receive Date: 20130115
  Receipt Date: 20130115
  Transmission Date: 20140127
  Serious: Yes (Other)
  Sender: FDA-Public Use
  Company Number: AU-BRISTOL-MYERS SQUIBB COMPANY-17135484

PATIENT
  Age: 49 Year
  Sex: Female
  Weight: 90 kg

DRUGS (7)
  1. ORENCIA FOR INJ [Suspect]
     Indication: RHEUMATOID ARTHRITIS
     Dosage: 25JUL2010:IV?4/52LY
     Route: 058
     Dates: start: 200902
  2. METHOTREXATE [Concomitant]
     Route: 048
  3. PANADEINE FORTE [Concomitant]
     Route: 048
  4. PRIMOLUT [Concomitant]
  5. FOLIC ACID [Concomitant]
     Route: 048
  6. VOLTAREN [Concomitant]
     Route: 048
  7. POLARAMINE [Concomitant]
     Route: 048

REACTIONS (6)
  - Influenza like illness [Not Recovered/Not Resolved]
  - Diarrhoea [Not Recovered/Not Resolved]
  - Vomiting [Not Recovered/Not Resolved]
  - Palpitations [Not Recovered/Not Resolved]
  - Sinusitis [Not Recovered/Not Resolved]
  - Hypersensitivity [Recovering/Resolving]
